FAERS Safety Report 8597339-5 (Version None)
Quarter: 2012Q3

REPORT INFORMATION
  Report Type: 
  Country: None (occurrence: None)
  Receive Date: 20120816
  Receipt Date: 20120815
  Transmission Date: 20120928
  Serious: No
  Sender: FDA-Public Use
  Company Number: US-PFIZER INC-2012199914

PATIENT
  Age: 58 Year
  Sex: Female
  Weight: 69.388 kg

DRUGS (5)
  1. PREMPRO [Concomitant]
     Indication: HOT FLUSH
     Dosage: UNK
  2. SUCRALFATE [Concomitant]
     Indication: IRRITABLE BOWEL SYNDROME
     Dosage: UNK, 2X/DAY
  3. CHANTIX [Suspect]
     Indication: SMOKING CESSATION THERAPY
     Dosage: 0.5 MG, 1X/DAY
     Route: 048
     Dates: start: 20120810
  4. CELEXA [Concomitant]
     Dosage: 20 MG, UNK
  5. CLONAZEPAM [Concomitant]
     Indication: ANXIETY
     Dosage: 1 MG, 2X/DAY

REACTIONS (3)
  - GASTROINTESTINAL PAIN [None]
  - IRRITABLE BOWEL SYNDROME [None]
  - ABDOMINAL DISCOMFORT [None]
